FAERS Safety Report 6295182-3 (Version None)
Quarter: 2009Q3

REPORT INFORMATION
  Report Type: 
  Country: None (occurrence: None)
  Receive Date: 20090729
  Receipt Date: 20090720
  Transmission Date: 20100115
  Serious: Yes (Death)
  Sender: FDA-Public Use
  Company Number: 2009-02911

PATIENT
  Age: 59 Year
  Sex: Female

DRUGS (3)
  1. VELCADE [Suspect]
     Indication: MULTIPLE MYELOMA
  2. DEXAMETHASONE [Concomitant]
  3. ADRIAMYCIN RDF [Concomitant]

REACTIONS (2)
  - INFECTION [None]
  - MULTI-ORGAN FAILURE [None]
